FAERS Safety Report 8815165 (Version 1)
Quarter: 2012Q4

REPORT INFORMATION
  Report Type: 
  Country: CA (occurrence: CA)
  Receive Date: 20120928
  Receipt Date: 20120928
  Transmission Date: 20130627
  Serious: Yes (Death)
  Sender: FDA-Public Use
  Company Number: CA-JNJFOC-20120908275

PATIENT
  Age: 58 Year
  Sex: Female

DRUGS (1)
  1. REMICADE [Suspect]
     Indication: PRODUCT USED FOR UNKNOWN INDICATION
     Dosage: day 0, on day 2, 6 weeks and once every 8 weeks there after
     Route: 042
     Dates: start: 20111111

REACTIONS (5)
  - Immunosuppression [Fatal]
  - Hypovolaemic shock [Fatal]
  - Septic shock [Fatal]
  - Gastrointestinal perforation [Fatal]
  - Diarrhoea [Unknown]
